FAERS Safety Report 25899098 (Version 1)
Quarter: 2025Q4

REPORT INFORMATION
  Report Type: Spontaneous
  Country: US (occurrence: US)
  Receive Date: 20251009
  Receipt Date: 20251009
  Transmission Date: 20260117
  Serious: Yes (Other)
  Sender: COOPERSURGICAL
  Company Number: US-COOPERSURGICAL, INC.-2025CPS007191

PATIENT
  Sex: Female
  Weight: 77.098 kg

DRUGS (1)
  1. PARAGARD T 380A [Suspect]
     Active Substance: COPPER
     Indication: Contraception
     Dosage: UNK
     Route: 015
     Dates: start: 20110101

REACTIONS (18)
  - High risk pregnancy [Recovered/Resolved]
  - Device breakage [Not Recovered/Not Resolved]
  - Foreign body in reproductive tract [Not Recovered/Not Resolved]
  - Complication of device removal [Not Recovered/Not Resolved]
  - Embedded device [Not Recovered/Not Resolved]
  - Psychological trauma [Not Recovered/Not Resolved]
  - Emotional distress [Unknown]
  - Musculoskeletal pain [Unknown]
  - Vaginal haemorrhage [Recovered/Resolved]
  - Vaginal infection [Recovered/Resolved]
  - Abdominal pain [Recovered/Resolved]
  - Abdominal pain lower [Unknown]
  - Dysmenorrhoea [Unknown]
  - Nausea [Unknown]
  - Hypomenorrhoea [Unknown]
  - Muscle spasms [Unknown]
  - Vaginal discharge [Unknown]
  - Heavy menstrual bleeding [Unknown]

NARRATIVE: CASE EVENT DATE: 20170101
